FAERS Safety Report 8350908-X (Version None)
Quarter: 2012Q2

REPORT INFORMATION
  Report Type: 
  Country: None (occurrence: None)
  Receive Date: 20120510
  Receipt Date: 20120504
  Transmission Date: 20120825
  Serious: Yes (Hospitalization)
  Sender: FDA-Public Use
  Company Number: US-PFIZER INC-2012096609

PATIENT
  Sex: Female

DRUGS (2)
  1. AMBRISENTAN [Concomitant]
     Indication: PULMONARY THROMBOSIS
     Dosage: UNK
  2. REVATIO [Suspect]
     Indication: HYPERTENSION
     Dosage: UNK

REACTIONS (1)
  - CARDIOMEGALY [None]
